FAERS Safety Report 9772506 (Version 1)
Quarter: 2013Q4

REPORT INFORMATION
  Report Type: Spontaneous
  Country: US (occurrence: None)
  Receive Date: 20131218
  Receipt Date: 20131218
  Transmission Date: 20140711
  Serious: Yes (Other)
  Sender: FDA-Public Use
  Company Number: 2013CT000082

PATIENT
  Age: 63 Year
  Sex: Male
  Weight: 113.4 kg

DRUGS (9)
  1. KORLYM [Suspect]
     Indication: CUSHING^S SYNDROME
     Dates: start: 20130930, end: 20131003
  2. KORLYM [Suspect]
     Indication: NASAL NEOPLASM
     Dates: start: 20130930, end: 20131003
  3. ANDROGEL [Concomitant]
  4. METFORMIN [Concomitant]
  5. GLIMEPIRIDE [Concomitant]
  6. LOTENSIN [Concomitant]
  7. JANUVIA [Concomitant]
  8. LANTUS [Concomitant]
  9. KETOCONAZOLE [Concomitant]

REACTIONS (8)
  - Fatigue [None]
  - Gait disturbance [None]
  - Headache [None]
  - Insomnia [None]
  - Back pain [None]
  - Asthenia [None]
  - Malaise [None]
  - Hepatic enzyme increased [None]
